FAERS Safety Report 6897837-6 (Version None)
Quarter: 2010Q3

REPORT INFORMATION
  Report Type: 
  Country: None (occurrence: None)
  Receive Date: 20100802
  Receipt Date: 20070807
  Transmission Date: 20110219
  Serious: No
  Sender: FDA-Public Use
  Company Number: US-PFIZER INC-2007063903

PATIENT
  Sex: Male
  Weight: 122.7 kg

DRUGS (7)
  1. LYRICA [Suspect]
     Indication: NEURALGIA
     Route: 048
     Dates: start: 20070401
  2. GLYBURIDE [Concomitant]
  3. METFORMIN HCL [Concomitant]
  4. CYMBALTA [Concomitant]
  5. KLONOPIN [Concomitant]
  6. GABITRIL [Concomitant]
  7. LANZOPRAL [Concomitant]

REACTIONS (1)
  - ABDOMINAL PAIN UPPER [None]
